FAERS Safety Report 6818448-4 (Version None)
Quarter: 2010Q3

REPORT INFORMATION
  Report Type: 
  Country: None (occurrence: None)
  Receive Date: 20100706
  Receipt Date: 20080805
  Transmission Date: 20110219
  Serious: No
  Sender: FDA-Public Use
  Company Number: US-PFIZER INC-2008060967

PATIENT
  Sex: Female
  Weight: 90.72 kg

DRUGS (3)
  1. ZITHROMAX [Suspect]
     Indication: OROPHARYNGEAL PAIN
  2. VITAMINS [Concomitant]
  3. ANTIBIOTICS [Concomitant]
     Indication: INFECTION

REACTIONS (2)
  - TOOTH ABSCESS [None]
  - TOOTH DISORDER [None]
